FAERS Safety Report 11454269 (Version 1)
Quarter: 2015Q3

REPORT INFORMATION
  Report Type: Spontaneous
  Country: GB (occurrence: GB)
  Receive Date: 20150903
  Receipt Date: 20150903
  Transmission Date: 20151125
  Serious: Yes (Other)
  Sender: FDA-Public Use
  Company Number: GB-PFIZER INC-2015242461

PATIENT
  Age: 84 Year
  Sex: Male

DRUGS (6)
  1. INLYTA [Suspect]
     Active Substance: AXITINIB
     Indication: RENAL CANCER
     Dosage: 10 MG, EVERY DAY
     Dates: start: 20150604, end: 20150730
  2. PREDNISOLONE. [Concomitant]
     Active Substance: PREDNISOLONE
     Indication: ARTHRALGIA
     Dosage: UNK
     Dates: start: 201102
  3. FINASTERIDE. [Concomitant]
     Active Substance: FINASTERIDE
     Indication: BLADDER DISORDER
     Dosage: UNK
     Dates: start: 201411
  4. INSULIN [Concomitant]
     Active Substance: INSULIN NOS
  5. MORPHINE [Concomitant]
     Active Substance: MORPHINE
     Indication: BACK PAIN
     Dosage: UNK
     Dates: start: 201006
  6. TAPLANIN [Concomitant]
     Indication: BLADDER DISORDER
     Dosage: UNK
     Dates: start: 201411

REACTIONS (14)
  - Proctalgia [Recovered/Resolved]
  - Fatigue [Recovered/Resolved]
  - Weight decreased [Recovered/Resolved]
  - Oral discomfort [Recovered/Resolved]
  - Pain in extremity [Recovered/Resolved]
  - Temperature intolerance [Recovered/Resolved]
  - Blood glucose decreased [Recovered/Resolved]
  - Dysphonia [Recovered/Resolved]
  - Oral pain [Recovered/Resolved]
  - Blister [Recovered/Resolved]
  - Peripheral swelling [Recovered/Resolved]
  - Diarrhoea [Recovered/Resolved]
  - Skin exfoliation [Recovered/Resolved]
  - Tremor [Recovered/Resolved]
